FAERS Safety Report 23172431 (Version 1)
Quarter: 2023Q4

REPORT INFORMATION
  Report Type: Spontaneous
  Country: SE (occurrence: SE)
  Receive Date: 20231110
  Receipt Date: 20231110
  Transmission Date: 20240110
  Serious: Yes (Death, Other)
  Sender: FDA-Public Use
  Company Number: None

PATIENT
  Age: 29 Year
  Sex: Female
  Weight: 100 kg

DRUGS (1)
  1. RINVOQ [Suspect]
     Active Substance: UPADACITINIB
     Indication: Colitis
     Route: 048
     Dates: start: 20230217

REACTIONS (3)
  - Pulmonary embolism [Fatal]
  - Portal vein thrombosis [Fatal]
  - Colostomy [Unknown]

NARRATIVE: CASE EVENT DATE: 20230913
